FAERS Safety Report 10190578 (Version 1)
Quarter: 2014Q2

REPORT INFORMATION
  Report Type: Spontaneous
  Country: IT (occurrence: IT)
  Receive Date: 20140523
  Receipt Date: 20140523
  Transmission Date: 20141212
  Serious: Yes (Hospitalization)
  Sender: FDA-Public Use
  Company Number: 2014SP002821

PATIENT
  Age: 62 Year
  Sex: Male

DRUGS (2)
  1. METHOTREXATE [Suspect]
     Indication: PSORIATIC ARTHROPATHY
     Route: 030
     Dates: start: 20050101, end: 20140131
  2. FOLIC ACID [Concomitant]

REACTIONS (2)
  - Hepatic cirrhosis [Not Recovered/Not Resolved]
  - Hepatic steatosis [Not Recovered/Not Resolved]
